FAERS Safety Report 5809104-X (Version None)
Quarter: 2008Q3

REPORT INFORMATION
  Report Type: 
  Country: None (occurrence: None)
  Receive Date: 20080714
  Receipt Date: 20080627
  Transmission Date: 20090109
  Serious: Yes (Life-Threatening, Hospitalization)
  Sender: FDA-Public Use
  Company Number: ES-GENENTECH-263943

PATIENT
  Age: 55 Year
  Sex: Female

DRUGS (3)
  1. HERCEPTIN [Suspect]
     Indication: BREAST CANCER
     Dosage: 150 MG, UNK
     Route: 042
     Dates: start: 20071221, end: 20080205
  2. TAXOL [Suspect]
     Indication: BREAST CANCER
     Dosage: 6 MG/ML, UNK
     Route: 042
     Dates: start: 20071221, end: 20080212
  3. MYOCET [Suspect]
     Indication: BREAST CANCER
     Dosage: 50 MG, UNK
     Route: 042
     Dates: start: 20071221, end: 20080205

REACTIONS (3)
  - DRUG INTERACTION [None]
  - PANCREATITIS ACUTE [None]
  - PNEUMONITIS [None]
